FAERS Safety Report 7557189-5 (Version None)
Quarter: 2011Q2

REPORT INFORMATION
  Report Type: 
  Country: None (occurrence: None)
  Receive Date: 20110616
  Receipt Date: 20110616
  Transmission Date: 20111010
  Serious: Yes (Life-Threatening)
  Sender: FDA-Public Use
  Company Number: None

PATIENT
  Age: 51 Year
  Sex: Male

DRUGS (1)
  1. ENBREL [Suspect]
     Indication: PSORIASIS
     Dosage: 50MG/1ML TWICE WEEKLY SQ
     Route: 058
     Dates: start: 20110524, end: 20110607

REACTIONS (2)
  - FALL [None]
  - DISORIENTATION [None]
